FAERS Safety Report 13447143 (Version 1)
Quarter: 2017Q2

REPORT INFORMATION
  Report Type: Spontaneous
  Country: US (occurrence: US)
  Receive Date: 20170414
  Receipt Date: 20170414
  Transmission Date: 20170830
  Serious: No
  Sender: FDA-Public Use
  Company Number: None

PATIENT
  Age: 71 Year
  Sex: Male
  Weight: 80.74 kg

DRUGS (1)
  1. GENTAMICIN. [Suspect]
     Active Substance: GENTAMICIN
     Indication: POST PROCEDURAL INFECTION
     Route: 042
     Dates: start: 20170317, end: 20170411

REACTIONS (4)
  - Fall [None]
  - Balance disorder [None]
  - Dizziness [None]
  - Drug level increased [None]

NARRATIVE: CASE EVENT DATE: 20170412
